FAERS Safety Report 17159708 (Version 3)
Quarter: 2020Q3

REPORT INFORMATION
  Report Type: Spontaneous
  Country: US (occurrence: US)
  Receive Date: 20191216
  Receipt Date: 20200918
  Transmission Date: 20201102
  Serious: Yes (Other)
  Sender: FDA-Public Use
  Company Number: US-PFIZER INC-2018504583

PATIENT
  Age: 69 Year
  Sex: Female

DRUGS (2)
  1. PRISTIQ EXTENDED?RELEASE [Suspect]
     Active Substance: DESVENLAFAXINE SUCCINATE
     Dosage: 400 MG, DAILY (TAKES 4 TABS DAILY)
  2. PRISTIQ EXTENDED?RELEASE [Suspect]
     Active Substance: DESVENLAFAXINE SUCCINATE
     Indication: BIPOLAR DISORDER
     Dosage: 400 MG (4 TABS), ONCE A DAY/ (4 PILLS A DAY)
     Dates: start: 20150210

REACTIONS (5)
  - Drug ineffective [Unknown]
  - Drug withdrawal convulsions [Unknown]
  - Depression [Unknown]
  - Status epilepticus [Unknown]
  - Prescribed overdose [Unknown]
